FAERS Safety Report 6478180-6 (Version None)
Quarter: 2009Q4

REPORT INFORMATION
  Report Type: 
  Country: None (occurrence: None)
  Receive Date: 20091202
  Receipt Date: 20091118
  Transmission Date: 20100525
  Serious: Yes (Death)
  Sender: FDA-Public Use
  Company Number: JHP200900377

PATIENT
  Age: 25 Year
  Sex: Male

DRUGS (3)
  1. KETALAR [Suspect]
     Indication: DRUG ABUSE
  2. METHYLENEDIOXYMETHAMPEHTAMINE (METHYLENEDIOXYMETHAMPHETAMINE) [Suspect]
     Indication: DRUG ABUSE
  3. LIDOCAINE [Suspect]

REACTIONS (2)
  - ACCIDENTAL DEATH [None]
  - DRUG TOXICITY [None]
